FAERS Safety Report 6255367-9 (Version None)
Quarter: 2009Q3

REPORT INFORMATION
  Report Type: 
  Country: None (occurrence: None)
  Receive Date: 20090702
  Receipt Date: 20090625
  Transmission Date: 20100115
  Serious: Yes (Hospitalization)
  Sender: FDA-Public Use
  Company Number: IE-AMGEN-QUU347180

PATIENT
  Sex: Female

DRUGS (4)
  1. NEULASTA [Suspect]
     Indication: CHEMOTHERAPY
     Route: 058
     Dates: start: 20090505
  2. IFOSFAMIDE [Concomitant]
     Dates: start: 20090504
  3. DOXORUBICIN HCL [Concomitant]
     Dates: start: 20090504
  4. ETOPOSIDE [Concomitant]
     Dates: start: 20090504

REACTIONS (2)
  - DRUG INEFFECTIVE [None]
  - NEUTROPENIA [None]
